FAERS Safety Report 8305930-6 (Version None)
Quarter: 2012Q2

REPORT INFORMATION
  Report Type: 
  Country: None (occurrence: None)
  Receive Date: 20120423
  Receipt Date: 20120413
  Transmission Date: 20120825
  Serious: Yes (Death)
  Sender: FDA-Public Use
  Company Number: JP-FRI-1000029752

PATIENT
  Sex: Female

DRUGS (9)
  1. IRBESARTAN [Concomitant]
     Indication: HYPERTENSION
     Dosage: 200 MG
     Route: 048
     Dates: end: 20120409
  2. MUCODYNE [Concomitant]
     Indication: PULMONARY TUBERCULOSIS
     Dosage: 1500 MG
     Route: 048
     Dates: end: 20120409
  3. MEMANTINE HCL [Suspect]
     Dosage: 10 MG
     Route: 048
     Dates: start: 20120101
  4. HOKUNALIN [Concomitant]
     Indication: PULMONARY TUBERCULOSIS
     Dosage: 1 MG
     Route: 061
     Dates: end: 20120409
  5. ARICEPT [Concomitant]
     Indication: DEMENTIA
     Dosage: 5 MG
     Route: 048
     Dates: end: 20120409
  6. CALBLOCK [Concomitant]
     Indication: HYPERTENSION
     Dosage: 16 MG
     Route: 048
     Dates: end: 20120409
  7. MEMANTINE HCL [Suspect]
     Dosage: 15 MG
     Route: 048
  8. MEMANTINE HCL [Suspect]
     Indication: DEMENTIA
     Dosage: 5 MG
     Route: 048
     Dates: start: 20120101, end: 20120101
  9. MEMANTINE HCL [Suspect]
     Dosage: 20 MG
     Route: 048
     Dates: end: 20120331

REACTIONS (2)
  - PNEUMONIA [None]
  - SOMNOLENCE [None]
